FAERS Safety Report 7366179-7 (Version None)
Quarter: 2011Q1

REPORT INFORMATION
  Report Type: 
  Country: None (occurrence: None)
  Receive Date: 20110310
  Receipt Date: 20110304
  Transmission Date: 20110831
  Serious: Yes (Other)
  Sender: FDA-Public Use
  Company Number: WAES 1103USA00899

PATIENT
  Age: 49 Year
  Sex: Male

DRUGS (12)
  1. EMEND [Suspect]
     Indication: PROPHYLAXIS OF NAUSEA AND VOMITING
     Dosage: (125 MG/DAILY) (80 MG/DAILY) (125 MG/DAILY) (80 MG/DAILY)
     Route: 048
     Dates: start: 20101109, end: 20101109
  2. EMEND [Suspect]
     Indication: PROPHYLAXIS OF NAUSEA AND VOMITING
     Dosage: (125 MG/DAILY) (80 MG/DAILY) (125 MG/DAILY) (80 MG/DAILY)
     Route: 048
     Dates: start: 20101013, end: 20101013
  3. EMEND [Suspect]
     Indication: PROPHYLAXIS OF NAUSEA AND VOMITING
     Dosage: (125 MG/DAILY) (80 MG/DAILY) (125 MG/DAILY) (80 MG/DAILY)
     Route: 048
     Dates: start: 20101014, end: 20101015
  4. EMEND [Suspect]
     Indication: PROPHYLAXIS OF NAUSEA AND VOMITING
     Dosage: (125 MG/DAILY) (80 MG/DAILY) (125 MG/DAILY) (80 MG/DAILY)
     Route: 048
     Dates: start: 20101110, end: 20101111
  5. CISPLATIN [Suspect]
     Indication: SMALL CELL LUNG CANCER STAGE UNSPECIFIED
     Dosage: (100 MG/DAILY) (100 MG/DAILY)
     Route: 042
     Dates: start: 20101109, end: 20101109
  6. CISPLATIN [Suspect]
     Indication: SMALL CELL LUNG CANCER STAGE UNSPECIFIED
     Dosage: (100 MG/DAILY) (100 MG/DAILY)
     Route: 042
     Dates: start: 20101013, end: 20101013
  7. GRANISETRON HCL [Concomitant]
  8. ETOPOSIDE [Suspect]
     Indication: SMALL CELL LUNG CANCER STAGE UNSPECIFIED
     Dosage: (100 MG/DAILY) (100 MG/DAILY)
     Route: 042
     Dates: start: 20101013, end: 20101015
  9. ETOPOSIDE [Suspect]
     Indication: SMALL CELL LUNG CANCER STAGE UNSPECIFIED
     Dosage: (100 MG/DAILY) (100 MG/DAILY)
     Route: 042
     Dates: start: 20101110, end: 20101111
  10. DEXART [Concomitant]
  11. CRAVIT [Concomitant]
  12. CODEINE PHOSPHATE [Concomitant]

REACTIONS (5)
  - ASPARTATE AMINOTRANSFERASE INCREASED [None]
  - NEUTROPHIL COUNT DECREASED [None]
  - ALANINE AMINOTRANSFERASE INCREASED [None]
  - HICCUPS [None]
  - BLOOD BILIRUBIN INCREASED [None]
